FAERS Safety Report 13853292 (Version 1)
Quarter: 2017Q3

REPORT INFORMATION
  Report Type: Spontaneous
  Country: US (occurrence: US)
  Receive Date: 20170809
  Receipt Date: 20170809
  Transmission Date: 20171127
  Serious: Yes (Other)
  Sender: FDA-Public Use
  Company Number: None

PATIENT
  Sex: Female
  Weight: 56.25 kg

DRUGS (2)
  1. DULOXETINE. [Suspect]
     Active Substance: DULOXETINE
     Indication: FIBROMYALGIA
     Route: 048
  2. PROBIOTICS [Concomitant]
     Active Substance: PROBIOTICS NOS

REACTIONS (3)
  - Pain [None]
  - Arthralgia [None]
  - Alopecia [None]

NARRATIVE: CASE EVENT DATE: 20170301
